FAERS Safety Report 9205884 (Version 2)
Quarter: 2013Q2

REPORT INFORMATION
  Report Type: Spontaneous
  Country: US (occurrence: None)
  Receive Date: 20120731
  Receipt Date: 20121130
  Transmission Date: 20140414
  Serious: Yes (Other)
  Sender: FDA-Public Use
  Company Number: US201204007198

PATIENT
  Age: 40 Year
  Sex: Female

DRUGS (2)
  1. BYDUREON [Suspect]
     Indication: TYPE 2 DIABETES MELLITUS
     Route: 058
     Dates: start: 20120411, end: 20120420
  2. METFORMIN (METFORMIN) [Concomitant]

REACTIONS (2)
  - Urticaria [None]
  - Pruritus [None]
